FAERS Safety Report 9460078 (Version 1)
Quarter: 2013Q3

REPORT INFORMATION
  Report Type: Spontaneous
  Country: US (occurrence: None)
  Receive Date: 20130814
  Receipt Date: 20130814
  Transmission Date: 20140515
  Serious: Yes (Life-Threatening)
  Sender: FDA-Public Use
  Company Number: None

PATIENT
  Age: 49 Year
  Sex: Male

DRUGS (1)
  1. EPZICOM 600MG ABACAVIR/300MG LAMIVUDINE VIIV HEALTHCARE [Suspect]
     Indication: HIV INFECTION
     Dosage: 1 TABLET 600MG/300MG ONCE DAILY ORAL
     Route: 048
     Dates: start: 20130719

REACTIONS (4)
  - Suicidal ideation [None]
  - Treatment noncompliance [None]
  - Gastrointestinal disorder [None]
  - Malaise [None]
